FAERS Safety Report 5255456-1 (Version None)
Quarter: 2007Q1

REPORT INFORMATION
  Report Type: 
  Country: None (occurrence: None)
  Receive Date: 20070305
  Receipt Date: 20070305
  Transmission Date: 20070707
  Serious: Yes (Hospitalization, Other)
  Sender: FDA-Public Use
  Company Number: CHWYE392101NOV06

PATIENT
  Age: 36 Year
  Sex: Female

DRUGS (1)
  1. VENLAFAXINE HYDROCHLORIDE [Suspect]
     Route: 048

REACTIONS (3)
  - CYSTITIS [None]
  - LIVER FUNCTION TEST ABNORMAL [None]
  - PANCREATIC ENZYMES INCREASED [None]
